FAERS Safety Report 9351407 (Version 1)
Quarter: 2013Q2

REPORT INFORMATION
  Report Type: Spontaneous
  Country: US (occurrence: US)
  Receive Date: 20130617
  Receipt Date: 20130617
  Transmission Date: 20140414
  Serious: No
  Sender: FDA-Public Use
  Company Number: US-UPSHER-SMITH LABORATORIES, INC.-13001785

PATIENT
  Age: 63 Year
  Sex: Female

DRUGS (15)
  1. AMANTADINE HYDROCHLORIDE [Suspect]
     Indication: CHRONIC FATIGUE SYNDROME
     Dosage: 100 MG, 2-3 TIMES DAILY
     Route: 048
     Dates: start: 20130411
  2. INSULIN [Concomitant]
     Indication: DIABETES MELLITUS
     Dosage: UNK
  3. CARBIDOPA/LEVODOPA [Concomitant]
     Indication: RESTLESS LEGS SYNDROME
     Dosage: UNK
  4. PROSOM [Concomitant]
     Indication: RESTLESS LEGS SYNDROME
     Dosage: UNK
  5. FLEXERIL                           /00428402/ [Concomitant]
     Indication: ARTHRALGIA
     Dosage: UNK
  6. FAMOTIDINE [Concomitant]
     Dosage: UNK
  7. BABY ASPIRIN [Concomitant]
     Dosage: UNK
  8. COQ10 [Concomitant]
     Dosage: UNK
  9. BETA CAROTENE [Concomitant]
     Dosage: UNK
  10. L-GLUTAMINE                        /00503401/ [Concomitant]
     Dosage: UNK
  11. L-CARNITINE                        /00878601/ [Concomitant]
     Dosage: UNK
  12. ALPHA LIPOIC ACID [Concomitant]
     Dosage: UNK
  13. POTASSIUM CITRATE [Concomitant]
     Dosage: UNK
  14. IBUPROFEN [Concomitant]
     Dosage: UNK
  15. FORTEO [Concomitant]
     Dosage: UNK

REACTIONS (3)
  - Drug ineffective for unapproved indication [Not Recovered/Not Resolved]
  - Oropharyngeal pain [Not Recovered/Not Resolved]
  - Lymphadenopathy [Not Recovered/Not Resolved]
